FAERS Safety Report 9303222 (Version 1)
Quarter: 2013Q2

REPORT INFORMATION
  Report Type: Spontaneous
  Country: CN (occurrence: CN)
  Receive Date: 20130522
  Receipt Date: 20130522
  Transmission Date: 20140414
  Serious: Yes (Death, Life-Threatening, Other)
  Sender: FDA-Public Use
  Company Number: CN-JNJFOC-20130510809

PATIENT
  Sex: Male

DRUGS (3)
  1. IMODIUM [Suspect]
     Indication: DIARRHOEA
     Dosage: ACCODING TO PRESCRIPTION
     Route: 048
     Dates: start: 20110728, end: 20110803
  2. TARCEVA [Suspect]
     Indication: NON-SMALL CELL LUNG CANCER
     Route: 065
     Dates: start: 201107
  3. TARCEVA [Suspect]
     Indication: NON-SMALL CELL LUNG CANCER
     Route: 065
     Dates: start: 20110801

REACTIONS (7)
  - Cardio-respiratory arrest [Fatal]
  - Abdominal pain [Not Recovered/Not Resolved]
  - Bone pain [Not Recovered/Not Resolved]
  - Malignant neoplasm progression [Unknown]
  - Pleural effusion [Unknown]
  - Dyspnoea [Unknown]
  - Drug ineffective [Not Recovered/Not Resolved]
